FAERS Safety Report 4809923-2 (Version None)
Quarter: 2005Q4

REPORT INFORMATION
  Report Type: 
  Country: None (occurrence: None)
  Receive Date: 20051024
  Receipt Date: 20051007
  Transmission Date: 20060501
  Serious: Yes (Other)
  Sender: FDA-Public Use
  Company Number: 2005143080

PATIENT
  Age: 17 Year
  Sex: Male

DRUGS (4)
  1. SERTRALINE HCL [Suspect]
     Indication: DEPRESSIVE SYMPTOM
  2. DIAZEPAM [Suspect]
     Indication: ILL-DEFINED DISORDER
     Dosage: ORAL
     Route: 048
  3. PSEUDOEPHEDRINE HCL [Suspect]
     Indication: ILL-DEFINED DISORDER
     Dosage: ORAL
     Route: 048
  4. ISOTRETINOIN [Suspect]
     Indication: ACNE
     Dosage: SEE IMAGE

REACTIONS (17)
  - ABNORMAL BEHAVIOUR [None]
  - ALCOHOL USE [None]
  - ANGER [None]
  - APATHY [None]
  - DECREASED APPETITE [None]
  - DECREASED INTEREST [None]
  - DISEASE RECURRENCE [None]
  - DRY SKIN [None]
  - FEELING OF DESPAIR [None]
  - FRUSTRATION [None]
  - INSOMNIA [None]
  - IRRITABILITY [None]
  - MAJOR DEPRESSION [None]
  - MOOD ALTERED [None]
  - MULTIPLE DRUG OVERDOSE [None]
  - SOCIAL AVOIDANT BEHAVIOUR [None]
  - SUICIDE ATTEMPT [None]
